FAERS Safety Report 9985079 (Version 1)
Quarter: 2014Q1

REPORT INFORMATION
  Report Type: Report from Study
  Country: US (occurrence: US)
  Receive Date: 20140307
  Receipt Date: 20140307
  Transmission Date: 20141002
  Serious: No
  Sender: FDA-Public Use
  Company Number: US-ABBVIE-14P-163-1187789-00

PATIENT
  Age: 20 Year
  Sex: Female

DRUGS (3)
  1. HUMIRA [Suspect]
     Indication: CROHN^S DISEASE
     Dates: start: 20131213, end: 20131213
  2. BENADRYL [Concomitant]
     Indication: HYPERSENSITIVITY
  3. NASAL SPRAY (UNKNOWN NAME) [Concomitant]
     Indication: HYPERSENSITIVITY

REACTIONS (3)
  - Respiratory tract congestion [Not Recovered/Not Resolved]
  - Injection site pain [Recovered/Resolved]
  - Sinusitis [Not Recovered/Not Resolved]
